FAERS Safety Report 4549130-4 (Version None)
Quarter: 2004Q4

REPORT INFORMATION
  Report Type: 
  Country: None (occurrence: None)
  Receive Date: 20041227
  Receipt Date: 20040921
  Transmission Date: 20050328
  Serious: No
  Sender: FDA-Public Use
  Company Number: 04P-163-0273956-00

PATIENT
  Age: 71 Year
  Sex: Female
  Weight: 90.7194 kg

DRUGS (12)
  1. HUMIRA [Suspect]
     Indication: RHEUMATOID ARTHRITIS
     Dosage: 40 MG, 1 IN 2 WK, SUBCUTANEOUS
     Route: 058
     Dates: start: 20040818
  2. ATORVASTATIN [Concomitant]
  3. ZETIA [Concomitant]
  4. LEVOTHYROXINE SODIUM [Concomitant]
  5. FOLBEE [Concomitant]
  6. PREDNISONE [Concomitant]
  7. ASPIRIN [Concomitant]
  8. CLOPIDOGREL BISULFATE [Concomitant]
  9. BISOPROLOL FUMARATE [Concomitant]
  10. OCUVITE [Concomitant]
  11. THERAPEUTIC-M [Concomitant]
  12. CALCIUM CARBONATE WITH VITAMIN D (CALCIUM CARBONATE) [Concomitant]

REACTIONS (1)
  - MUSCLE CRAMP [None]
